FAERS Safety Report 8102250-X (Version None)
Quarter: 2012Q1

REPORT INFORMATION
  Report Type: 
  Country: None (occurrence: None)
  Receive Date: 20120131
  Receipt Date: 20120131
  Transmission Date: 20120608
  Serious: Yes (Hospitalization, Other)
  Sender: FDA-Public Use
  Company Number: None

PATIENT
  Age: 45 Year
  Sex: Male

DRUGS (3)
  1. LISINOPRIL [Suspect]
     Dosage: 40MG DAILY OVER A YEAR, SEVERAL MONTHS AT RETAIL AND MAIL SERVICE FROM 3/31/2011
  2. AMLODIPINE [Concomitant]
  3. PRAVASTATIN [Concomitant]

REACTIONS (2)
  - ANGIOEDEMA [None]
  - DRUG HYPERSENSITIVITY [None]
